FAERS Safety Report 4983833-2 (Version None)
Quarter: 2006Q2

REPORT INFORMATION
  Report Type: 
  Country: None (occurrence: None)
  Receive Date: 20060426
  Receipt Date: 20051215
  Transmission Date: 20061013
  Serious: Yes (Hospitalization, Other)
  Sender: FDA-Public Use
  Company Number: US-MERCK-0512USA02644

PATIENT
  Age: 71 Year
  Sex: Male
  Weight: 102 kg

DRUGS (6)
  1. VIOXX [Suspect]
     Indication: ARTHRITIS
     Route: 048
     Dates: start: 20020125, end: 20020220
  2. VIOXX [Suspect]
     Indication: OSTEOARTHRITIS
     Route: 048
     Dates: start: 20020125, end: 20020220
  3. CELEBREX [Concomitant]
     Route: 065
     Dates: start: 20010101, end: 20020801
  4. FOLTRIN [Concomitant]
     Route: 065
     Dates: start: 20010101
  5. FRAGMIN [Concomitant]
     Route: 065
  6. VASOTEC [Concomitant]
     Indication: HYPERTENSION
     Route: 065
     Dates: start: 20020101

REACTIONS (7)
  - BLOOD CHOLESTEROL INCREASED [None]
  - CAROTID ARTERY STENOSIS [None]
  - CEREBROVASCULAR ACCIDENT [None]
  - CONVULSION [None]
  - FALL [None]
  - HERNIA [None]
  - HYPERTHYROIDISM [None]
